FAERS Safety Report 7771983-7 (Version None)
Quarter: 2011Q3

REPORT INFORMATION
  Report Type: 
  Country: None (occurrence: None)
  Receive Date: 20110922
  Receipt Date: 20100813
  Transmission Date: 20111222
  Serious: No
  Sender: FDA-Public Use
  Company Number: US-ASTRAZENECA-2010SE38101

PATIENT
  Sex: Male
  Weight: 88.5 kg

DRUGS (3)
  1. SEROQUEL XR [Suspect]
     Route: 048
  2. SEROQUEL XR [Suspect]
     Indication: MANIA
     Route: 048
     Dates: start: 20080101
  3. SEROQUEL XR [Suspect]
     Route: 048
     Dates: end: 20080101

REACTIONS (7)
  - UNEMPLOYMENT [None]
  - DEPRESSION [None]
  - APATHY [None]
  - BEDRIDDEN [None]
  - WEIGHT INCREASED [None]
  - ABNORMAL BEHAVIOUR [None]
  - DRUG DOSE OMISSION [None]
